FAERS Safety Report 12478129 (Version 2)
Quarter: 2016Q3

REPORT INFORMATION
  Report Type: Spontaneous
  Country: US (occurrence: US)
  Receive Date: 20160617
  Receipt Date: 20160825
  Transmission Date: 20161109
  Serious: No
  Sender: FDA-Public Use
  Company Number: GXBR2016US001426

PATIENT
  Sex: Female
  Weight: 54.42 kg

DRUGS (2)
  1. GLATOPA [Suspect]
     Active Substance: GLATIRAMER ACETATE
     Indication: MULTIPLE SCLEROSIS
     Dosage: 20 ML, QD
     Route: 065
  2. LEVOTHYROXINE. [Concomitant]
     Active Substance: LEVOTHYROXINE
     Indication: HYPOTHYROIDISM
     Dosage: UNK DF, QD
     Route: 048
     Dates: start: 201003

REACTIONS (6)
  - Nasopharyngitis [Unknown]
  - Pain [Unknown]
  - Burning sensation [Unknown]
  - Pyrexia [Unknown]
  - Feeling cold [Unknown]
  - Palpitations [Unknown]
